FAERS Safety Report 7271418-7 (Version None)
Quarter: 2011Q1

REPORT INFORMATION
  Report Type: 
  Country: None (occurrence: None)
  Receive Date: 20110203
  Receipt Date: 20110125
  Transmission Date: 20110831
  Serious: No
  Sender: FDA-Public Use
  Company Number: US-BIOGENIDEC-2011BI002802

PATIENT
  Age: 65 Year
  Sex: Female

DRUGS (1)
  1. AVONEX [Suspect]
     Indication: MULTIPLE SCLEROSIS
     Route: 030
     Dates: start: 20100218

REACTIONS (6)
  - FALL [None]
  - NIGHT SWEATS [None]
  - FACIAL NERVE DISORDER [None]
  - GAIT DISTURBANCE [None]
  - HAEMATOMA [None]
  - CONTUSION [None]
